FAERS Safety Report 12874379 (Version 2)
Quarter: 2016Q4

REPORT INFORMATION
  Report Type: Spontaneous
  Country: US (occurrence: US)
  Receive Date: 20161021
  Receipt Date: 20161025
  Transmission Date: 20170207
  Serious: Yes (Death)
  Sender: FDA-Public Use
  Company Number: PHEH2016US027149

PATIENT
  Age: 29 Year
  Sex: Female
  Weight: 63.4 kg

DRUGS (1)
  1. AFINITOR [Suspect]
     Active Substance: EVEROLIMUS
     Indication: BREAST CANCER
     Dosage: 10 MG, QD
     Route: 048
     Dates: start: 20160802

REACTIONS (1)
  - Death [Fatal]

NARRATIVE: CASE EVENT DATE: 20161005
